FAERS Safety Report 20877599 (Version 2)
Quarter: 2022Q2

REPORT INFORMATION
  Report Type: Report from Study
  Country: US (occurrence: US)
  Receive Date: 20220526
  Receipt Date: 20220603
  Transmission Date: 20220720
  Serious: No
  Sender: FDA-Public Use
  Company Number: US-BEH-2022145535

PATIENT
  Age: 49 Year
  Sex: Female

DRUGS (3)
  1. HIZENTRA [Suspect]
     Active Substance: HUMAN IMMUNOGLOBULIN G
     Indication: Primary immunodeficiency syndrome
     Dosage: 3 GRAM, QW
     Route: 058
     Dates: start: 20220515
  2. HIZENTRA [Suspect]
     Active Substance: HUMAN IMMUNOGLOBULIN G
     Indication: Hypogammaglobulinaemia
     Dosage: 3 GRAM, QW
     Route: 058
     Dates: start: 20220515
  3. HIZENTRA [Suspect]
     Active Substance: HUMAN IMMUNOGLOBULIN G
     Dosage: UNK
     Route: 065
     Dates: start: 20220522

REACTIONS (11)
  - Infusion site bruising [Unknown]
  - Wrong technique in product usage process [Unknown]
  - Infusion site pain [Unknown]
  - Infusion site pain [Unknown]
  - Infusion site mass [Unknown]
  - Abdominal pain [Unknown]
  - Nausea [Unknown]
  - Headache [Unknown]
  - Fatigue [Recovering/Resolving]
  - Oedema peripheral [Recovered/Resolved]
  - Contusion [Recovering/Resolving]

NARRATIVE: CASE EVENT DATE: 20220515
